FAERS Safety Report 8864789 (Version 1)
Quarter: 2012Q4

REPORT INFORMATION
  Report Type: 
  Country: US (occurrence: US)
  Receive Date: 20121024
  Receipt Date: 20121024
  Transmission Date: 20130627
  Serious: No
  Sender: FDA-Public Use
  Company Number: US-AMGEN-USASP2011069427

PATIENT
  Age: 46 Year
  Sex: Female
  Weight: 66.67 kg

DRUGS (24)
  1. ENBREL [Suspect]
     Indication: RHEUMATOID ARTHRITIS
     Dosage: 50 mg, qwk
     Route: 058
     Dates: start: 20110928
  2. SINGULAIR [Concomitant]
     Dosage: 10 mg, UNK
  3. CELEBREX [Concomitant]
     Dosage: 50 mg, UNK
  4. METHOTREXATE [Concomitant]
     Dosage: 2.5 mg, UNK
  5. LORATADINE [Concomitant]
     Dosage: 10 mg, UNK
  6. CLONAZEPAM [Concomitant]
     Dosage: 1 mg, UNK
  7. KETOCONAZOLE [Concomitant]
     Dosage: 2 %, UNK
     Route: 061
  8. GABAPENTIN [Concomitant]
     Dosage: 100 mg, UNK
  9. LISINOPRIL [Concomitant]
     Dosage: 2.5 mg, UNK
  10. ALENDRONATE SODIUM [Concomitant]
     Dosage: 5 mg, UNK
  11. OMEPRAZOLE [Concomitant]
     Dosage: 40 mg, UNK
  12. SIMVASTATIN [Concomitant]
     Dosage: 5 mg, UNK
  13. FOLIC ACID [Concomitant]
     Dosage: 1 mg, UNK
  14. DESONIDE [Concomitant]
     Dosage: 0.05 %, UNK
     Route: 061
  15. ALPRAZOLAM [Concomitant]
     Dosage: 1 mg, UNK
  16. THYRO [Concomitant]
     Dosage: 15 mg, UNK
  17. LEXAPRO [Concomitant]
     Dosage: 5 mg, UNK
  18. VITAMIN D3 [Concomitant]
     Dosage: 1000 IU, UNK
  19. ZETIA [Concomitant]
     Dosage: 10 mg, UNK
  20. SUPER B COMPL [Concomitant]
     Route: 048
  21. FERROUS SULFATE [Concomitant]
  22. HYDROCODONE/APAP [Concomitant]
  23. RANEXA [Concomitant]
     Dosage: 500 mg, UNK
  24. GRAPE SEED [Concomitant]

REACTIONS (3)
  - Rheumatoid arthritis [Not Recovered/Not Resolved]
  - Drug effect incomplete [Not Recovered/Not Resolved]
  - Vulvovaginal mycotic infection [Recovered/Resolved]
